FAERS Safety Report 5363137-9 (Version None)
Quarter: 2007Q2

REPORT INFORMATION
  Report Type: 
  Country: None (occurrence: None)
  Receive Date: 20070618
  Receipt Date: 20070611
  Transmission Date: 20071010
  Serious: Yes (Hospitalization)
  Sender: FDA-Public Use
  Company Number: 2007AL002352

PATIENT
  Age: 15 Year
  Sex: Male
  Weight: 42 kg

DRUGS (6)
  1. DIGOXIN [Suspect]
     Indication: CARDIAC FAILURE
     Dosage: 0.25 MG; QD
  2. DIGOXIN [Suspect]
     Indication: PLEURAL EFFUSION
     Dosage: 0.25 MG; QD
  3. SPIRONOLACTONE [Concomitant]
  4. SILDENAFIL CITRATE [Concomitant]
  5. ENALAPRIL [Concomitant]
  6. NIFEDIPINE [Concomitant]

REACTIONS (9)
  - ATRIOVENTRICULAR BLOCK SECOND DEGREE [None]
  - CARDIOMEGALY [None]
  - EXTRASYSTOLES [None]
  - HEADACHE [None]
  - NAUSEA [None]
  - SCOTOMA [None]
  - THERAPEUTIC AGENT TOXICITY [None]
  - VENTRICULAR EXTRASYSTOLES [None]
  - VOMITING [None]
